FAERS Safety Report 5004555-8 (Version None)
Quarter: 2006Q2

REPORT INFORMATION
  Report Type: 
  Country: None (occurrence: None)
  Receive Date: 20060512
  Receipt Date: 20060504
  Transmission Date: 20061013
  Serious: Yes (Other)
  Sender: FDA-Public Use
  Company Number: 200511079BWH

PATIENT
  Age: 61 Year
  Sex: Male
  Weight: 105.2345 kg

DRUGS (6)
  1. LEVITRA [Suspect]
     Indication: ERECTILE DYSFUNCTION
     Dosage: 20 MG, OW, ORAL; SEE IMAGE
     Route: 048
     Dates: start: 20041201, end: 20050301
  2. LEVITRA [Suspect]
     Indication: ERECTILE DYSFUNCTION
     Dosage: 20 MG, OW, ORAL; SEE IMAGE
     Route: 048
     Dates: start: 20050301
  3. ATENOLOL [Concomitant]
  4. HYDROCHLOROTHIAZIDE [Concomitant]
  5. ALLOPURINOL [Concomitant]
  6. POTASSIUM [Concomitant]

REACTIONS (7)
  - ABNORMAL SENSATION IN EYE [None]
  - EYE DISORDER [None]
  - HEADACHE [None]
  - INCORRECT DOSE ADMINISTERED [None]
  - VISION BLURRED [None]
  - VITREOUS DETACHMENT [None]
  - VITREOUS FLOATERS [None]
